FAERS Safety Report 4760254-9 (Version None)
Quarter: 2005Q3

REPORT INFORMATION
  Report Type: 
  Country: None (occurrence: None)
  Receive Date: 20050902
  Receipt Date: 20050822
  Transmission Date: 20060218
  Serious: Yes (Other)
  Sender: FDA-Public Use
  Company Number: US-ROCHE-415400

PATIENT
  Age: 68 Year
  Sex: Female
  Weight: 54.4 kg

DRUGS (2)
  1. VALIUM [Suspect]
     Indication: ANXIETY
     Route: 048
     Dates: start: 19950615, end: 20030615
  2. FOSAMAX [Concomitant]
     Route: 048
     Dates: start: 20010615

REACTIONS (15)
  - AGITATION [None]
  - ANXIETY [None]
  - CONTUSION [None]
  - DELUSION [None]
  - DEPENDENCE [None]
  - EATING DISORDER [None]
  - FALL [None]
  - HAEMORRHAGIC STROKE [None]
  - HALLUCINATION [None]
  - HEADACHE [None]
  - HYPERACUSIS [None]
  - MOUTH ULCERATION [None]
  - MUSCLE SPASMS [None]
  - SPEECH DISORDER [None]
  - STRESS [None]
